FAERS Safety Report 7341749-0 (Version None)
Quarter: 2011Q1

REPORT INFORMATION
  Report Type: 
  Country: None (occurrence: None)
  Receive Date: 20110309
  Receipt Date: 20110301
  Transmission Date: 20110831
  Serious: Yes (Other)
  Sender: FDA-Public Use
  Company Number: US-ASTRAZENECA-2011SE11171

PATIENT
  Age: 651 Month
  Sex: Female

DRUGS (11)
  1. SEROQUEL [Suspect]
     Dosage: 25-300 MG
     Route: 048
     Dates: start: 20060506
  2. TRANXENE [Concomitant]
     Dates: start: 20070531
  3. CYMBALTA [Concomitant]
     Route: 048
     Dates: start: 20061017
  4. AVALIDE [Concomitant]
     Dosage: 300/12.5 MGONE DAILY
     Route: 048
     Dates: start: 20070531
  5. TRICOR [Concomitant]
     Route: 048
     Dates: start: 20070531
  6. ATENOLOL [Concomitant]
     Dates: start: 20040315
  7. AMBIEN [Concomitant]
     Dates: start: 20040301
  8. PAXIL CR [Concomitant]
     Dates: start: 20071114
  9. TEMAZEPAM [Concomitant]
     Dates: start: 20071114
  10. LABETALOL HCL [Concomitant]
     Dates: start: 20061017
  11. AVALIDE [Concomitant]
     Dosage: 300/25 MGONE DAILY
     Route: 048
     Dates: start: 20061017

REACTIONS (9)
  - UTERINE DISORDER [None]
  - HYPERGLYCAEMIA [None]
  - BLOOD CREATININE INCREASED [None]
  - RENAL FAILURE CHRONIC [None]
  - DIABETES MELLITUS [None]
  - OBESITY [None]
  - TENDONITIS [None]
  - NEUROPATHY PERIPHERAL [None]
  - RENAL DISORDER [None]
